FAERS Safety Report 8985581 (Version 1)
Quarter: 2012Q4

REPORT INFORMATION
  Report Type: 
  Country: JP (occurrence: JP)
  Receive Date: 20121226
  Receipt Date: 20121226
  Transmission Date: 20130627
  Serious: Yes (Hospitalization)
  Sender: FDA-Public Use
  Company Number: JP-OTSUKA-JP-2012-17032

PATIENT
  Age: 84 Year
  Sex: Male

DRUGS (2)
  1. PLETAAL [Suspect]
     Dosage: 50 Mg milligram(s), bid
     Route: 048
     Dates: start: 1995
  2. ASPIRIN [Concomitant]
     Dosage: 100 Mg milligram(s), daily dose
     Route: 048
     Dates: start: 1995

REACTIONS (1)
  - Small intestinal ulcer haemorrhage [Unknown]
